FAERS Safety Report 7179925-2 (Version None)
Quarter: 2010Q4

REPORT INFORMATION
  Report Type: 
  Country: None (occurrence: None)
  Receive Date: 20101221
  Receipt Date: 20101215
  Transmission Date: 20110411
  Serious: Yes (Other)
  Sender: FDA-Public Use
  Company Number: US-PFIZER INC-2010174522

PATIENT
  Sex: Male
  Weight: 71.667 kg

DRUGS (14)
  1. LIPITOR [Suspect]
     Indication: BLOOD CHOLESTEROL INCREASED
     Dosage: 80 MG, 1X/DAY
  2. ASPIRIN [Concomitant]
  3. CYCLOSPORINE [Concomitant]
  4. CELLCEPT [Concomitant]
  5. PREDNISONE [Concomitant]
  6. NIFEDIPINE [Concomitant]
  7. LISINOPRIL [Concomitant]
  8. LABETALOL HCL [Concomitant]
  9. NITROGLYCERIN [Concomitant]
  10. NEXIUM [Concomitant]
  11. ALLOPURINOL [Concomitant]
  12. NEPHROCAPS [Concomitant]
  13. GLIPIZIDE [Concomitant]
  14. ERGOCALCIFEROL [Concomitant]

REACTIONS (4)
  - BIOPSY KIDNEY [None]
  - RED BLOOD CELL ABNORMALITY [None]
  - RENAL TUBULAR DISORDER [None]
  - URINARY CASTS [None]
